FAERS Safety Report 8772056 (Version 1)
Quarter: 2012Q4

REPORT INFORMATION
  Report Type: 
  Country: US (occurrence: US)
  Receive Date: 20120906
  Receipt Date: 20120906
  Transmission Date: 20130627
  Serious: No
  Sender: FDA-Public Use
  Company Number: US-009507513-1208USA005949

PATIENT

DRUGS (1)
  1. NUVARING [Suspect]
     Indication: CONTRACEPTION
     Dosage: 3 weeks in, 1 week out
     Route: 067
     Dates: start: 20120805, end: 20120810

REACTIONS (4)
  - Muscle spasms [Unknown]
  - Muscle spasms [Recovered/Resolved]
  - Urinary incontinence [Unknown]
  - Device expulsion [Unknown]
